FAERS Safety Report 21619486 (Version 1)
Quarter: 2022Q4

REPORT INFORMATION
  Report Type: Spontaneous
  Country: US (occurrence: US)
  Receive Date: 20221121
  Receipt Date: 20221121
  Transmission Date: 20230113
  Serious: No
  Sender: FDA-Public Use
  Company Number: US-SA-SAC20221115001729

PATIENT
  Age: 14 Year
  Sex: Female
  Weight: 128 kg

DRUGS (1)
  1. DUPIXENT [Suspect]
     Active Substance: DUPILUMAB
     Indication: Dermatitis atopic
     Dosage: 1 DF, QOW
     Route: 058
     Dates: start: 2019

REACTIONS (3)
  - Chest pain [Not Recovered/Not Resolved]
  - Pruritus [Recovered/Resolved]
  - Symptom recurrence [Recovered/Resolved]
